FAERS Safety Report 10261948 (Version 1)
Quarter: 2014Q2

REPORT INFORMATION
  Report Type: Spontaneous
  Country: US (occurrence: US)
  Receive Date: 20140626
  Receipt Date: 20140626
  Transmission Date: 20141212
  Serious: Yes (Hospitalization)
  Sender: FDA-Public Use
  Company Number: US-ACTELION-A-NJ2014-100571

PATIENT
  Age: 64 Year
  Sex: Female

DRUGS (12)
  1. OPSUMIT [Suspect]
     Indication: COR PULMONALE CHRONIC
     Dosage: UNK
     Route: 048
     Dates: start: 20140414
  2. PLAVIX [Concomitant]
  3. ASPIRIN [Concomitant]
  4. XANAX [Concomitant]
  5. BUMETANIDE [Concomitant]
  6. PANTOPRAZOLE [Concomitant]
  7. ADVAIR [Concomitant]
  8. SPIRIVA [Concomitant]
  9. AMLODIPINE [Concomitant]
  10. AMITRIPTYLINE [Concomitant]
  11. CARVEDILOL [Concomitant]
  12. LEVALBUTEROL [Concomitant]

REACTIONS (1)
  - Transient ischaemic attack [Recovered/Resolved]
